FAERS Safety Report 10035425 (Version 1)
Quarter: 2014Q1

REPORT INFORMATION
  Report Type: Spontaneous
  Country: DE (occurrence: DE)
  Receive Date: 20140325
  Receipt Date: 20140325
  Transmission Date: 20141002
  Serious: Yes (Hospitalization)
  Sender: FDA-Public Use
  Company Number: DE-B.I. PHARMACEUTICALS,INC./RIDGEFIELD-2014-BI-12599DE

PATIENT
  Age: 66 Year
  Sex: Male
  Weight: 106 kg

DRUGS (13)
  1. PRADAXA [Suspect]
     Indication: ATRIAL FIBRILLATION
     Dosage: 220 MG
     Route: 065
  2. INSULIN ACTRAPID [Concomitant]
     Route: 065
  3. BELOC ZOK [Concomitant]
     Route: 065
  4. KOMBOGLYZE 2,5/1000 [Concomitant]
     Dosage: 2.5 / 1000
     Route: 065
  5. RAMIPRIL 10 [Concomitant]
     Dosage: 10
     Route: 065
  6. INSULIN LANCTUS [Concomitant]
     Route: 065
  7. CARMEN 20 [Concomitant]
     Dosage: 20
     Route: 065
  8. PANTOPRAZOL 40 [Concomitant]
     Dosage: 40
     Route: 065
  9. ADENURIC 80 [Concomitant]
     Dosage: 80
     Route: 065
  10. GABAPENTIN 600 [Concomitant]
     Dosage: 600
     Route: 065
  11. SIMVASTATIN 20 [Concomitant]
     Dosage: 20
     Route: 065
  12. HCT 25 [Concomitant]
     Dosage: 25
     Route: 065
  13. STILNOX 10 [Concomitant]
     Dosage: 10
     Route: 065

REACTIONS (3)
  - Cerebrovascular accident [Not Recovered/Not Resolved]
  - Vertigo [Not Recovered/Not Resolved]
  - Fatigue [Not Recovered/Not Resolved]
